FAERS Safety Report 9790312 (Version 3)
Quarter: 2014Q1

REPORT INFORMATION
  Report Type: Report from Study
  Country: BE (occurrence: BE)
  Receive Date: 20131231
  Receipt Date: 20140331
  Transmission Date: 20141002
  Serious: Yes (Hospitalization, Other)
  Sender: FDA-Public Use
  Company Number: BE-JNJFOC-20131216858

PATIENT
  Age: 74 Year
  Sex: Male
  Weight: 65 kg

DRUGS (10)
  1. XARELTO [Suspect]
     Indication: ATRIAL FIBRILLATION
     Route: 048
     Dates: start: 20130301, end: 20130801
  2. XARELTO [Suspect]
     Indication: CEREBROVASCULAR ACCIDENT PROPHYLAXIS
     Route: 048
     Dates: start: 20130301, end: 20130801
  3. CORDARONE [Concomitant]
     Route: 065
     Dates: start: 20080606
  4. EMCONCOR [Concomitant]
     Route: 065
     Dates: start: 20130305
  5. ASAFLOW [Concomitant]
     Route: 065
     Dates: start: 20130301
  6. LISINOPRIL [Concomitant]
     Route: 065
     Dates: start: 20130301
  7. LASIX [Concomitant]
     Route: 065
     Dates: start: 20130305
  8. ALDACTONE A [Concomitant]
     Route: 065
     Dates: start: 20130305
  9. LOESFERRON [Concomitant]
     Route: 065
     Dates: start: 20130801, end: 20131101
  10. AUGMENTIN [Concomitant]
     Route: 065
     Dates: start: 20130706, end: 20130716

REACTIONS (8)
  - Immune reconstitution inflammatory syndrome associated tuberculosis [Recovered/Resolved]
  - Atrial flutter [Recovered/Resolved]
  - Cardiovascular disorder [Recovered/Resolved]
  - Anaemia [Recovered/Resolved]
  - Constipation [Not Recovered/Not Resolved]
  - Pain in extremity [Recovered/Resolved]
  - Paraesthesia [Recovered/Resolved]
  - Nephropathy [Recovered/Resolved]
